FAERS Safety Report 15591152 (Version 1)
Quarter: 2018Q4

REPORT INFORMATION
  Report Type: Spontaneous
  Country: US (occurrence: US)
  Receive Date: 20181106
  Receipt Date: 20181106
  Transmission Date: 20190205
  Serious: No
  Sender: FDA-Public Use
  Company Number: US-PFIZER INC-2018442483

PATIENT
  Sex: Female

DRUGS (1)
  1. LYRICA [Suspect]
     Active Substance: PREGABALIN
     Indication: DYSTONIA
     Dosage: 1 DF, 3X/DAY [1 IN MORNING AND 2 AT NIGHT]

REACTIONS (3)
  - Product use in unapproved indication [Unknown]
  - Intentional product misuse [Unknown]
  - Malaise [Unknown]
